FAERS Safety Report 25889038 (Version 2)
Quarter: 2025Q4

REPORT INFORMATION
  Report Type: Spontaneous
  Country: US (occurrence: US)
  Receive Date: 20251007
  Receipt Date: 20251028
  Transmission Date: 20260118
  Serious: No
  Sender: BAUSCH AND LOMB
  Company Number: US-BAUSCH-BH-2025-018185

PATIENT
  Age: 60 Year
  Sex: Female

DRUGS (1)
  1. RELISTOR [Suspect]
     Active Substance: METHYLNALTREXONE BROMIDE
     Indication: Constipation
     Route: 065
     Dates: start: 202508

REACTIONS (5)
  - Infrequent bowel movements [Not Recovered/Not Resolved]
  - Abdominal distension [Not Recovered/Not Resolved]
  - Visual impairment [Unknown]
  - Dyschezia [Unknown]
  - Faeces hard [Unknown]

NARRATIVE: CASE EVENT DATE: 20250101
